FAERS Safety Report 16322745 (Version 3)
Quarter: 2019Q2

REPORT INFORMATION
  Report Type: Report from Study
  Country: None (occurrence: ES)
  Receive Date: 20190516
  Receipt Date: 20190621
  Transmission Date: 20190711
  Serious: Yes (Other)
  Sender: FDA-Public Use
  Company Number: ES-ABBVIE-19S-144-2773083-00

PATIENT
  Age: 78 Year
  Sex: Female
  Weight: 64 kg

DRUGS (11)
  1. EMCONCOR [Concomitant]
     Active Substance: BISOPROLOL FUMARATE
     Indication: PRODUCT USED FOR UNKNOWN INDICATION
     Dosage: FREQUENCY: 1.5. 1 DAYS
     Route: 048
  2. NATECAL D FLAS [Concomitant]
     Indication: PRODUCT USED FOR UNKNOWN INDICATION
     Route: 048
  3. RIVOTRIL [Concomitant]
     Active Substance: CLONAZEPAM
     Indication: ANXIETY
     Dosage: IF REQUIRED
     Route: 065
     Dates: start: 20190502
  4. RIVOTRIL [Concomitant]
     Active Substance: CLONAZEPAM
     Indication: AGITATION
     Dosage: IF REQUIRED
     Route: 065
     Dates: end: 20190502
  5. DUODOPA [Suspect]
     Active Substance: CARBIDOPA\LEVODOPA
     Dosage: DOSE REDUCED
     Route: 050
     Dates: start: 20190502, end: 201905
  6. DUODOPA [Suspect]
     Active Substance: CARBIDOPA\LEVODOPA
     Dosage: CD 3.8 ML/H, ED 3.7ML
     Route: 050
     Dates: start: 201905
  7. XARELTO [Concomitant]
     Active Substance: RIVAROXABAN
     Indication: PRODUCT USED FOR UNKNOWN INDICATION
     Route: 048
     Dates: end: 20190430
  8. BRINTELLIX [Suspect]
     Active Substance: VORTIOXETINE HYDROBROMIDE
     Indication: DEPRESSION
     Route: 048
     Dates: start: 20190429, end: 20190502
  9. XARELTO [Concomitant]
     Active Substance: RIVAROXABAN
     Route: 048
     Dates: start: 20190503
  10. DUODOPA [Suspect]
     Active Substance: CARBIDOPA\LEVODOPA
     Indication: PARKINSON^S DISEASE
     Dosage: CD 4.7, MD 13, 2 ED
     Route: 050
     Dates: start: 20190429, end: 20190502
  11. SINEMET [Concomitant]
     Active Substance: CARBIDOPA\LEVODOPA
     Indication: PARKINSON^S DISEASE
     Dosage: 200
     Route: 048
     Dates: start: 20190429

REACTIONS (8)
  - Depressed level of consciousness [Recovering/Resolving]
  - Delusion [Recovered/Resolved]
  - Consciousness fluctuating [Recovered/Resolved]
  - Somnolence [Recovered/Resolved]
  - On and off phenomenon [Recovered/Resolved]
  - Agitation [Recovered/Resolved]
  - Confabulation [Recovering/Resolving]
  - Confusional state [Recovered/Resolved]

NARRATIVE: CASE EVENT DATE: 20190502
